FAERS Safety Report 15500528 (Version 1)
Quarter: 2020Q3

REPORT INFORMATION
  Report Type: Spontaneous
  Country: ES (occurrence: ES)
  Receive Date: 20181015
  Receipt Date: 20181015
  Transmission Date: 20201104
  Serious: Yes (Other)
  Sender: FDA-Public Use
  Company Number: ES-MYLANLABS-2018M1074161

PATIENT
  Age: 36 Year
  Sex: Female

DRUGS (2)
  1. AZATHIOPRINE. [Suspect]
     Active Substance: AZATHIOPRINE
     Indication: COLITIS ULCERATIVE
     Route: 065
  2. ETROLIZUMAB. [Suspect]
     Active Substance: ETROLIZUMAB
     Indication: COLITIS ULCERATIVE
     Route: 065

REACTIONS (1)
  - Hodgkin^s disease [Unknown]
